FAERS Safety Report 19472169 (Version 4)
Quarter: 2022Q4

REPORT INFORMATION
  Report Type: Spontaneous
  Country: CN (occurrence: None)
  Receive Date: 20210629
  Receipt Date: 20221128
  Transmission Date: 20230112
  Serious: Yes (Other)
  Sender: FDA-Public Use
  Company Number: CN-ROCHE-2854790

PATIENT
  Age: 46 Year
  Sex: Female

DRUGS (9)
  1. XELODA [Suspect]
     Active Substance: CAPECITABINE
     Indication: Breast cancer
     Route: 048
     Dates: start: 202006, end: 202010
  2. XELODA [Suspect]
     Active Substance: CAPECITABINE
     Route: 048
     Dates: start: 202011
  3. PERJETA [Suspect]
     Active Substance: PERTUZUMAB
     Indication: Breast cancer
     Dosage: 840 MG FOR THE FIRST DOSE AND 420 MG THEREAFTER ONCE EVERY THREE WEEKS 4 CYCLES
     Route: 065
     Dates: start: 20210319, end: 20210523
  4. PERJETA [Suspect]
     Active Substance: PERTUZUMAB
     Dosage: PERTUZUMAB AND TRASTUZUMAB MAINTENANCE FROM JUN 2021 TO MAR 2022
     Route: 065
  5. HERCEPTIN [Suspect]
     Active Substance: TRASTUZUMAB
     Indication: Breast cancer
     Dosage: 440 MG FOR THE FIRST DOSE AND 348 MG THEREAFTER ONCE EVERY THREE WEEKS 4 CYCLES
     Route: 065
     Dates: start: 20210319, end: 20210523
  6. HERCEPTIN [Suspect]
     Active Substance: TRASTUZUMAB
     Dosage: PERTUZUMAB AND TRASTUZUMAB MAINTENANCE FROM JUN 2021 TO MAR 2022
     Route: 065
  7. RIVAROXABAN [Concomitant]
     Active Substance: RIVAROXABAN
     Indication: Thrombosis prophylaxis
     Dates: start: 202006, end: 202010
  8. RIVAROXABAN [Concomitant]
     Active Substance: RIVAROXABAN
     Dates: start: 20210319, end: 20210523
  9. PYROTINIB [Concomitant]
     Active Substance: PYROTINIB
     Indication: Breast cancer

REACTIONS (7)
  - White blood cell count decreased [Unknown]
  - White blood cell count increased [Unknown]
  - Neutrophil count increased [Unknown]
  - Neutrophil count decreased [Unknown]
  - Haemoglobin decreased [Unknown]
  - Platelet count decreased [Unknown]
  - Platelet count increased [Unknown]
